FAERS Safety Report 20939156 (Version 5)
Quarter: 2024Q1

REPORT INFORMATION
  Report Type: Spontaneous
  Country: US (occurrence: US)
  Receive Date: 20220609
  Receipt Date: 20240314
  Transmission Date: 20240410
  Serious: Yes (Other)
  Sender: FDA-Public Use
  Company Number: US-PFIZER INC-202200798028

PATIENT
  Age: 72 Year
  Sex: Male

DRUGS (2)
  1. RETACRIT [Suspect]
     Active Substance: EPOETIN ALFA-EPBX
     Indication: Red blood cell count decreased
     Dosage: 10000 IU, UNK
  2. RETACRIT [Suspect]
     Active Substance: EPOETIN ALFA-EPBX
     Dosage: 20000 IU, UNK

REACTIONS (9)
  - Chronic kidney disease [Unknown]
  - Renal impairment [Unknown]
  - Blood immunoglobulin M increased [Unknown]
  - Therapeutic product effect incomplete [Unknown]
  - Blood immunoglobulin A increased [Unknown]
  - Blood immunoglobulin G increased [Unknown]
  - Antibody test abnormal [Unknown]
  - Blood immunoglobulin A decreased [Unknown]
  - Blood immunoglobulin M decreased [Unknown]
